FAERS Safety Report 8019729-1 (Version None)
Quarter: 2012Q1

REPORT INFORMATION
  Report Type: 
  Country: None (occurrence: None)
  Receive Date: 20120103
  Receipt Date: 20111222
  Transmission Date: 20120608
  Serious: Yes (Other)
  Sender: FDA-Public Use
  Company Number: JP-GLAXOSMITHKLINE-B0766576A

PATIENT
  Sex: Male

DRUGS (4)
  1. EPILEO PETIT MAL [Concomitant]
     Indication: EPILEPSY
     Dosage: 800MG PER DAY
     Route: 048
  2. NITRAZEPAM [Concomitant]
     Indication: EPILEPSY
     Dosage: 10MG PER DAY
     Route: 048
  3. LAMICTAL [Suspect]
     Indication: EPILEPSY
     Route: 048
     Dates: start: 20100121
  4. DEPAKENE [Concomitant]
     Indication: EPILEPSY
     Dosage: 400MG PER DAY
     Route: 048
     Dates: start: 20110708

REACTIONS (3)
  - RASH [None]
  - PSORIASIS [None]
  - DERMATOSIS [None]
